FAERS Safety Report 7811316-0 (Version None)
Quarter: 2011Q4

REPORT INFORMATION
  Report Type: 
  Country: None (occurrence: None)
  Receive Date: 20111013
  Receipt Date: 20111010
  Transmission Date: 20120403
  Serious: Yes (Death, Hospitalization)
  Sender: FDA-Public Use
  Company Number: GB-SANOFI-AVENTIS-2011SA066370

PATIENT
  Age: 78 Year
  Sex: Male
  Weight: 82 kg

DRUGS (12)
  1. CYCLIZINE [Concomitant]
     Route: 065
  2. DEXAMETHASONE [Concomitant]
     Route: 065
  3. DOMPERIDONE [Concomitant]
     Route: 065
  4. TRAMADOL HCL [Concomitant]
     Route: 065
  5. ACETAMINOPHEN [Concomitant]
     Route: 065
  6. ONDANSETRON [Concomitant]
     Route: 065
  7. CAPECITABINE [Concomitant]
     Route: 065
  8. OXALIPLATIN [Suspect]
     Indication: COLORECTAL CANCER
     Dosage: 9/ 5 MONTHS.
     Route: 042
     Dates: start: 20101201, end: 20110101
  9. ENOXAPARIN [Concomitant]
     Route: 065
  10. LOPERAMIDE HCL [Concomitant]
     Route: 065
  11. MORPHINE [Concomitant]
     Route: 065
  12. ROSUVASTATIN [Concomitant]
     Route: 065

REACTIONS (3)
  - RESPIRATORY FAILURE [None]
  - PULMONARY FIBROSIS [None]
  - PYREXIA [None]
